FAERS Safety Report 20492837 (Version 4)
Quarter: 2022Q2

REPORT INFORMATION
  Report Type: Other
  Country: US (occurrence: None)
  Receive Date: 20220219
  Receipt Date: 20220429
  Transmission Date: 20220720
  Serious: Yes (Hospitalization)
  Sender: FDA-Public Use
  Company Number: US-ROCHE-3028781

PATIENT
  Age: 62 Year
  Sex: Female
  Weight: 61.744 kg

DRUGS (4)
  1. OCREVUS [Suspect]
     Active Substance: OCRELIZUMAB
     Indication: Relapsing multiple sclerosis
     Dosage: INFUSE 20ML (600 MG) INTRAVENOUSLY EVERY 6 MONTH(S)
     Route: 042
     Dates: start: 20190320, end: 20210701
  2. BACLOFEN [Concomitant]
     Active Substance: BACLOFEN
  3. TIZANIDINE HYDROCHLORIDE [Concomitant]
     Active Substance: TIZANIDINE HYDROCHLORIDE
  4. METRONIDAZOLE [Concomitant]
     Active Substance: METRONIDAZOLE

REACTIONS (9)
  - COVID-19 [Not Recovered/Not Resolved]
  - Bacterial vulvovaginitis [Not Recovered/Not Resolved]
  - Urinary tract infection [Unknown]
  - Vaginal infection [Unknown]
  - Fungal infection [Unknown]
  - Therapy non-responder [Not Recovered/Not Resolved]
  - Decreased immune responsiveness [Unknown]
  - Drug ineffective [Unknown]
  - Decreased immune responsiveness [Unknown]

NARRATIVE: CASE EVENT DATE: 20220114
